FAERS Safety Report 8221126-0 (Version None)
Quarter: 2012Q1

REPORT INFORMATION
  Report Type: 
  Country: None (occurrence: None)
  Receive Date: 20120320
  Receipt Date: 20120315
  Transmission Date: 20120608
  Serious: Yes (Death, Other)
  Sender: FDA-Public Use
  Company Number: JP-BAYER-2011-048118

PATIENT
  Age: 75 Year
  Sex: Male

DRUGS (13)
  1. SORAFENIB (RAF KINASE INHIBITOR) [Suspect]
     Dosage: 400 MG, QD
     Route: 048
     Dates: start: 20110420, end: 20110516
  2. EPLERENONE [Concomitant]
     Dosage: DAILY DOSE 50 MG
     Route: 048
  3. FUROSEMIDE [Concomitant]
     Dosage: DAILY DOSE 20 MG
     Route: 048
  4. CANDESARTAN CILEXETIL [Concomitant]
     Dosage: DAILY DOSE 8 MG
     Route: 048
  5. WARFARIN SODIUM [Concomitant]
     Dosage: DAILY DOSE 2 MG
     Route: 048
     Dates: end: 20110531
  6. BISOPROLOL FUMARATE [Concomitant]
     Dosage: DAILY DOSE 2.5 MG
     Route: 048
  7. BROTIZOLAM [Concomitant]
     Dosage: DAILY DOSE .25 MG
     Route: 048
  8. PLAVIX [Concomitant]
     Indication: CEREBROVASCULAR ACCIDENT PROPHYLAXIS
     Dosage: DAILY DOSE 75 MG
     Route: 048
     Dates: end: 20110531
  9. SORAFENIB (RAF KINASE INHIBITOR) [Suspect]
     Dosage: 200 MG/DAY Q72HR
     Dates: start: 20111017, end: 20111114
  10. FEROTYM [Concomitant]
     Dosage: DAILY DOSE 50 MG
     Route: 048
  11. SORAFENIB (RAF KINASE INHIBITOR) [Suspect]
     Indication: HEPATIC NEOPLASM MALIGNANT
     Dosage: 200 MG, QD
     Route: 048
     Dates: start: 20110414, end: 20110420
  12. RABEPRAZOLE SODIUM [Concomitant]
     Dosage: DAILY DOSE 10 MG
     Route: 048
  13. PURSENNID [Concomitant]
     Dosage: DAILY DOSE 12 MG
     Route: 048

REACTIONS (10)
  - LYMPHOCYTE COUNT DECREASED [None]
  - CONSTIPATION [None]
  - DIARRHOEA [None]
  - DYSPHONIA [None]
  - RED BLOOD CELL COUNT DECREASED [None]
  - HAEMOGLOBIN DECREASED [None]
  - HEPATIC NEOPLASM MALIGNANT [None]
  - HAEMATOCHEZIA [None]
  - FAECES DISCOLOURED [None]
  - HYPERTENSION [None]
